FAERS Safety Report 7296867-2 (Version None)
Quarter: 2011Q1

REPORT INFORMATION
  Report Type: 
  Country: None (occurrence: None)
  Receive Date: 20110204
  Receipt Date: 20110131
  Transmission Date: 20110831
  Serious: Yes (Life-Threatening, Hospitalization)
  Sender: FDA-Public Use
  Company Number: 2011SP003967

PATIENT
  Age: 69 Year
  Sex: Male
  Weight: 73.5 kg

DRUGS (20)
  1. REBETOL [Suspect]
     Indication: HEPATITIS C
     Dosage: 800 MG QD, PO
     Route: 048
     Dates: start: 20110111, end: 20110115
  2. ASPIRIN [Concomitant]
  3. STRONGER NEO MINOPHAGEN C [Concomitant]
  4. ADALAT CC [Concomitant]
  5. METFORMIN HCL [Concomitant]
  6. NEUROTROPIN [Concomitant]
  7. LEVEMIR [Concomitant]
  8. LIPITOR [Concomitant]
  9. SELARA (EPLERENONE) [Concomitant]
  10. URSO 250 [Concomitant]
  11. BLOPRESS [Concomitant]
  12. LASIX [Concomitant]
  13. OPALMON (LIMAPROST ALFADEX) [Concomitant]
  14. METHYCOBAL [Concomitant]
  15. NOVORAPID [Concomitant]
  16. PARIET [Concomitant]
  17. VOLTAREN [Concomitant]
  18. BASEN [Concomitant]
  19. FERON (INTERFERON) [Suspect]
     Indication: HEPATITIS C
     Dosage: 6 MIU QD, IV
     Route: 042
     Dates: start: 20110111, end: 20110115
  20. PLAVIX [Concomitant]

REACTIONS (2)
  - MENINGITIS BACTERIAL [None]
  - PSOAS ABSCESS [None]
